FAERS Safety Report 13820571 (Version 2)
Quarter: 2017Q3

REPORT INFORMATION
  Report Type: Spontaneous
  Country: US (occurrence: US)
  Receive Date: 20170801
  Receipt Date: 20170815
  Transmission Date: 20171127
  Serious: No
  Sender: FDA-Public Use
  Company Number: US-JNJFOC-20170713233

PATIENT
  Sex: Female

DRUGS (4)
  1. ORTHO NOVUM [Suspect]
     Active Substance: MESTRANOL\NORETHINDRONE
     Indication: CONTRACEPTION
     Route: 048
     Dates: end: 1980
  2. ORTHO NOVUM [Suspect]
     Active Substance: MESTRANOL\NORETHINDRONE
     Indication: CONTRACEPTION
     Dosage: LATE SEPTEMBER
     Route: 048
     Dates: start: 196309
  3. ORTHO NOVUM [Suspect]
     Active Substance: MESTRANOL\NORETHINDRONE
     Indication: CONTRACEPTION
     Route: 048
  4. ORTHO NOVUM [Suspect]
     Active Substance: MESTRANOL\NORETHINDRONE
     Indication: CONTRACEPTION
     Route: 048
     Dates: end: 197211

REACTIONS (2)
  - Abdominal distension [Unknown]
  - Swelling [Unknown]

NARRATIVE: CASE EVENT DATE: 1978
